FAERS Safety Report 8450304-0 (Version None)
Quarter: 2012Q2

REPORT INFORMATION
  Report Type: 
  Country: None (occurrence: None)
  Receive Date: 20120620
  Receipt Date: 20120606
  Transmission Date: 20120825
  Serious: Yes (Other)
  Sender: FDA-Public Use
  Company Number: US-CELGENEUS-163-21880-12061024

PATIENT
  Sex: Male
  Weight: 93.07 kg

DRUGS (15)
  1. REVLIMID [Suspect]
     Dosage: 10 MILLIGRAM
     Route: 048
     Dates: start: 20070130, end: 20070501
  2. LANTUS [Concomitant]
     Route: 065
  3. MULTI-VITAMINS [Concomitant]
     Route: 065
  4. MULTI-VITAMINS [Concomitant]
     Route: 065
  5. TESTOSTERONE [Concomitant]
     Route: 050
  6. LAMISIL [Concomitant]
     Route: 061
  7. SOMA [Concomitant]
     Route: 065
  8. REVLIMID [Suspect]
     Dosage: 5 MILLIGRAM
     Route: 048
     Dates: start: 20070501
  9. HUMALOG [Concomitant]
     Route: 065
  10. NORCO [Concomitant]
     Route: 065
  11. CELEBREX [Concomitant]
     Route: 065
  12. NEURONTIN [Concomitant]
     Route: 065
  13. FENTANYL [Concomitant]
     Route: 065
  14. FLOMAX [Concomitant]
     Route: 065
  15. LORTAB [Concomitant]
     Route: 065

REACTIONS (1)
  - PREGNANCY OF PARTNER [None]
